FAERS Safety Report 24840504 (Version 1)
Quarter: 2025Q1

REPORT INFORMATION
  Report Type: Spontaneous
  Country: CN (occurrence: CN)
  Receive Date: 20250114
  Receipt Date: 20250114
  Transmission Date: 20250408
  Serious: Yes (Other)
  Sender: BEIGENE
  Company Number: CN-BEIGENE-BGN-2025-000368

PATIENT

DRUGS (6)
  1. TISLELIZUMAB [Suspect]
     Active Substance: TISLELIZUMAB
     Indication: Oesophageal cancer metastatic
     Dosage: 200 MILLIGRAM D1, Q3WK
     Route: 041
     Dates: start: 20241106
  2. TISLELIZUMAB [Suspect]
     Active Substance: TISLELIZUMAB
     Indication: Metastases to liver
  3. CISPLATIN [Suspect]
     Active Substance: CISPLATIN
     Indication: Oesophageal cancer metastatic
     Dosage: 20 MILLIGRAM D1, Q3WK
     Route: 041
     Dates: start: 20241106
  4. CISPLATIN [Suspect]
     Active Substance: CISPLATIN
     Indication: Metastases to liver
     Dosage: 30 MILLIGRAM D2-3, Q3WK
     Route: 041
     Dates: start: 20241107
  5. DOCETAXEL [Suspect]
     Active Substance: DOCETAXEL
     Indication: Oesophageal cancer metastatic
     Dosage: 80 MILLIGRAM D1, Q3WK
     Route: 041
     Dates: start: 20241106
  6. DOCETAXEL [Suspect]
     Active Substance: DOCETAXEL
     Indication: Metastases to liver

REACTIONS (2)
  - Myelosuppression [Recovering/Resolving]
  - Nausea [Recovering/Resolving]

NARRATIVE: CASE EVENT DATE: 20241110
